FAERS Safety Report 7299712-4 (Version None)
Quarter: 2011Q1

REPORT INFORMATION
  Report Type: 
  Country: None (occurrence: None)
  Receive Date: 20110209
  Receipt Date: 20110125
  Transmission Date: 20110831
  Serious: Yes (Other)
  Sender: FDA-Public Use
  Company Number: AUR-APL-2011-00205

PATIENT
  Age: 63 Year
  Weight: 71 kg

DRUGS (5)
  1. VALPROATE SODIUM [Concomitant]
  2. DONEPAZIL [Concomitant]
  3. FUCITHALMIC THERAPY [Concomitant]
  4. SENNA [Concomitant]
  5. CEPHALEXIN [Suspect]
     Dates: start: 20110104

REACTIONS (2)
  - BLISTER [None]
  - RASH [None]
